FAERS Safety Report 7804112-1 (Version None)
Quarter: 2011Q4

REPORT INFORMATION
  Report Type: 
  Country: None (occurrence: None)
  Receive Date: 20111010
  Receipt Date: 20110930
  Transmission Date: 20120403
  Serious: Yes (Other)
  Sender: FDA-Public Use
  Company Number: IE-ASTELLAS-2011EU002003

PATIENT
  Sex: Female

DRUGS (2)
  1. BETNOVATE [Concomitant]
     Indication: ECZEMA
     Dosage: UNK
     Route: 061
  2. TACROLIMUS [Suspect]
     Indication: DERMATITIS ATOPIC
     Dosage: 0.1 %, MONTHLY
     Route: 061
     Dates: start: 20080101

REACTIONS (2)
  - LYMPHADENOPATHY [None]
  - OFF LABEL USE [None]
